FAERS Safety Report 18947681 (Version 1)
Quarter: 2021Q1

REPORT INFORMATION
  Report Type: Spontaneous
  Country: US (occurrence: US)
  Receive Date: 20210226
  Receipt Date: 20210226
  Transmission Date: 20210420
  Serious: No
  Sender: FDA-Public Use
  Company Number: US-MYLANLABS-2021M1009368

PATIENT
  Age: 45 Year
  Sex: Female
  Weight: 91 kg

DRUGS (1)
  1. NORETHINDRONE TABLETS, USP [Suspect]
     Active Substance: NORETHINDRONE
     Indication: CONTRACEPTION
     Dosage: A TABLET A DAY
     Route: 048

REACTIONS (4)
  - Vaginal haemorrhage [Not Recovered/Not Resolved]
  - Metrorrhagia [Not Recovered/Not Resolved]
  - Weight increased [Not Recovered/Not Resolved]
  - Maternal exposure during breast feeding [Not Recovered/Not Resolved]
